FAERS Safety Report 5777345-6 (Version None)
Quarter: 2008Q2

REPORT INFORMATION
  Report Type: 
  Country: None (occurrence: None)
  Receive Date: 20080618
  Receipt Date: 20080617
  Transmission Date: 20081010
  Serious: Yes (Hospitalization)
  Sender: FDA-Public Use
  Company Number: US-GENENTECH-254421

PATIENT
  Sex: Female
  Weight: 63.039 kg

DRUGS (3)
  1. BLINDED BEVACIZUMAB [Suspect]
     Indication: BREAST CANCER METASTATIC
     Dosage: 608 MG, Q2W
     Route: 042
     Dates: start: 20070228
  2. BLINDED PLACEBO [Suspect]
     Indication: BREAST CANCER METASTATIC
     Dosage: 608 MG, Q2W
     Route: 042
     Dates: start: 20070228
  3. TAXOL [Suspect]
     Indication: BREAST CANCER METASTATIC
     Dosage: 145 MG, UNK
     Dates: start: 20070228

REACTIONS (1)
  - PULMONARY OEDEMA [None]
